FAERS Safety Report 8200729-3 (Version None)
Quarter: 2012Q1

REPORT INFORMATION
  Report Type: 
  Country: None (occurrence: None)
  Receive Date: 20120227
  Receipt Date: 20120222
  Transmission Date: 20120608
  Serious: Yes (Life-Threatening, Other)
  Sender: FDA-Public Use
  Company Number: 2012031002

PATIENT
  Sex: Male

DRUGS (2)
  1. CITRATE 4% [Concomitant]
  2. ALBURX [Suspect]
     Indication: MYASTHENIA GRAVIS
     Dosage: (3 L, RATE OF 100 ML/MIN INTRAVENOUS (NOT OTHERWISE SPECIFED))
     Route: 042
     Dates: start: 20120202, end: 20120204

REACTIONS (1)
  - ANGIOEDEMA [None]
